FAERS Safety Report 13466842 (Version 3)
Quarter: 2017Q2

REPORT INFORMATION
  Report Type: Spontaneous
  Country: US (occurrence: US)
  Receive Date: 20170421
  Receipt Date: 20170602
  Transmission Date: 20170830
  Serious: No
  Sender: FDA-Public Use
  Company Number: US-GLAXOSMITHKLINE-US2017056535

PATIENT
  Age: 80 Year
  Sex: Female

DRUGS (3)
  1. CEFDINIR. [Concomitant]
     Active Substance: CEFDINIR
  2. VENTOLIN HFA [Suspect]
     Active Substance: ALBUTEROL SULFATE
     Indication: DYSPNOEA
  3. VENTOLIN HFA [Suspect]
     Active Substance: ALBUTEROL SULFATE
     Indication: BRONCHITIS
     Dosage: UNK, SINGLE
     Dates: start: 20170417, end: 20170418

REACTIONS (6)
  - Anxiety [Recovered/Resolved]
  - Chest discomfort [Recovered/Resolved]
  - Adverse reaction [Unknown]
  - Tension [Unknown]
  - Heart rate increased [Recovered/Resolved]
  - Dyspnoea [Unknown]

NARRATIVE: CASE EVENT DATE: 20170417
